FAERS Safety Report 6539346-X (Version None)
Quarter: 2010Q1

REPORT INFORMATION
  Report Type: 
  Country: None (occurrence: None)
  Receive Date: 20100115
  Receipt Date: 20100103
  Transmission Date: 20100710
  Serious: Yes (Hospitalization)
  Sender: FDA-Public Use
  Company Number: US-PFIZER INC-2010000053

PATIENT
  Sex: Male
  Weight: 77.1 kg

DRUGS (13)
  1. CVX-060 [Suspect]
     Indication: COLORECTAL CANCER
     Dosage: 447 MG, CYCLIC WEEKLY
     Route: 042
     Dates: start: 20091203, end: 20091223
  2. SUNITINIB MALATE [Suspect]
     Indication: COLORECTAL CANCER
     Dosage: 50 MG, ONCE DAILY, 4/2 SCHEDULE
     Route: 048
     Dates: start: 20091203, end: 20091222
  3. COZAAR [Concomitant]
     Indication: HYPERTENSION
     Dosage: 100 MG, 1X/DAY
     Route: 048
     Dates: start: 20030101
  4. NORVASC [Concomitant]
     Indication: HYPERTENSION
     Dosage: 10 MG, 1X/DAY
     Route: 048
     Dates: start: 20030101
  5. AMBIEN [Concomitant]
     Indication: INSOMNIA
     Dosage: 5 MG, AS NEEDED
     Route: 048
     Dates: start: 20091116
  6. LOPERAMIDE HYDROCHLORIDE [Concomitant]
     Indication: DIARRHOEA
     Dosage: 2 MG, AS NEEDED
     Route: 048
     Dates: start: 20091207
  7. TUMS [Concomitant]
     Indication: DYSPEPSIA
     Dosage: UNK
     Route: 048
     Dates: start: 20091210
  8. PROTONIX [Concomitant]
     Indication: DYSPEPSIA
     Dosage: 40 MG, 1X/DAY
     Route: 048
     Dates: start: 20091217
  9. MARINOL [Concomitant]
     Indication: DECREASED APPETITE
     Dosage: 5 MG, AS NEEDED
     Route: 048
     Dates: start: 20091217
  10. ROBITUSSIN-DM [Concomitant]
     Indication: COUGH
     Dosage: UNK
     Route: 048
     Dates: start: 20091211
  11. ACTIGALL [Concomitant]
     Indication: HYPERBILIRUBINAEMIA
     Dosage: 600 MG, 3X/DAY
     Route: 048
     Dates: start: 20091228
  12. SYNTHROID [Concomitant]
     Indication: HYPOTHYROIDISM
     Dosage: 50 MG, 1X/DAY
     Route: 048
     Dates: start: 20091228
  13. NEULASTA [Concomitant]
     Indication: NEUTROPENIA
     Dosage: 6 MG
     Route: 058
     Dates: start: 20091228, end: 20091228

REACTIONS (1)
  - THROMBOTIC THROMBOCYTOPENIC PURPURA [None]
